FAERS Safety Report 5820058-2 (Version None)
Quarter: 2008Q3

REPORT INFORMATION
  Report Type: 
  Country: None (occurrence: None)
  Receive Date: 20080724
  Receipt Date: 20080716
  Transmission Date: 20090109
  Serious: Yes (Other)
  Sender: FDA-Public Use
  Company Number: RO-JNJFOC-20080704179

PATIENT
  Sex: Male

DRUGS (6)
  1. CONCERTA [Suspect]
     Indication: ATTENTION DEFICIT/HYPERACTIVITY DISORDER
     Route: 048
  2. RISPOLEPT [Concomitant]
     Indication: AUTISM
     Route: 048
     Dates: start: 20080706
  3. RISPOLEPT [Concomitant]
     Indication: ATTENTION DEFICIT/HYPERACTIVITY DISORDER
     Route: 048
     Dates: start: 20080706
  4. CLONAZEPAM [Concomitant]
     Indication: AUTISM
     Route: 048
     Dates: start: 20070130
  5. CLONAZEPAM [Concomitant]
     Indication: ATTENTION DEFICIT/HYPERACTIVITY DISORDER
     Route: 048
     Dates: start: 20070130
  6. SUPRADYN [Concomitant]
     Indication: HYPOMETABOLISM
     Dosage: 20 DAYS/MONTH
     Route: 048
     Dates: start: 20071206

REACTIONS (3)
  - AGITATION [None]
  - RESTLESSNESS [None]
  - STEREOTYPY [None]
